FAERS Safety Report 6045912-0 (Version None)
Quarter: 2009Q1

REPORT INFORMATION
  Report Type: 
  Country: None (occurrence: None)
  Receive Date: 20090116
  Receipt Date: 20090105
  Transmission Date: 20090719
  Serious: Yes (Hospitalization, Disabling)
  Sender: FDA-Public Use
  Company Number: 1000003494

PATIENT
  Sex: Male

DRUGS (1)
  1. CELEXA [Suspect]

REACTIONS (7)
  - CONVULSION [None]
  - FACIAL BONES FRACTURE [None]
  - FACIAL PAIN [None]
  - FALL [None]
  - SENSORY DISTURBANCE [None]
  - SKIN LACERATION [None]
  - VISUAL FIELD DEFECT [None]
